FAERS Safety Report 15752262 (Version 1)
Quarter: 2020Q3

REPORT INFORMATION
  Report Type: Report from Study
  Country: US (occurrence: CA)
  Receive Date: 20181221
  Receipt Date: 20181221
  Transmission Date: 20201105
  Serious: Yes (Hospitalization, Other)
  Sender: FDA-Public Use
  Company Number: US-PFIZER INC-2018519282

PATIENT
  Age: 65 Year
  Sex: Female

DRUGS (2)
  1. ADAVOSERTIB. [Suspect]
     Active Substance: ADAVOSERTIB
     Indication: OVARIAN CANCER
     Dosage: 175 MG, ON DAYS 1, 2, 8, 9, 15 AND 16
     Route: 048
     Dates: start: 20150225, end: 20150325
  2. GEMCITABINE HYDROCHLORIDE. [Suspect]
     Active Substance: GEMCITABINE HYDROCHLORIDE
     Indication: OVARIAN CANCER
     Dosage: 1000 MG/M2, IV OVER 30 MINUTES ON DAYS 1, 8 AND 15
     Route: 042
     Dates: start: 20150225, end: 20150325

REACTIONS (1)
  - Hypokalaemia [Recovered/Resolved]

NARRATIVE: CASE EVENT DATE: 20150401
